FAERS Safety Report 15004150 (Version 2)
Quarter: 2018Q3

REPORT INFORMATION
  Report Type: Spontaneous
  Country: US (occurrence: US)
  Receive Date: 20180613
  Receipt Date: 20180804
  Transmission Date: 20181010
  Serious: Yes (Hospitalization, Other)
  Sender: FDA-Public Use
  Company Number: US-AUROBINDO-AUR-APL-2018-030877

PATIENT
  Age: 10 Year
  Sex: Male

DRUGS (5)
  1. ARIPIPRAZOLE. [Suspect]
     Active Substance: ARIPIPRAZOLE
     Dosage: 3 MILLIGRAM, DAILY
     Route: 065
  2. GUANFACINE. [Concomitant]
     Active Substance: GUANFACINE
     Indication: MENTAL DISORDER
     Dosage: 2 MILLIGRAM, TWO TIMES A DAY
     Route: 065
  3. ARIPIPRAZOLE. [Suspect]
     Active Substance: ARIPIPRAZOLE
     Dosage: 5 MILLIGRAM, DAILY
     Route: 065
  4. GUANFACINE. [Concomitant]
     Active Substance: GUANFACINE
     Dosage: 2 MILLIGRAM, TWO TIMES A DAY
     Route: 065
  5. ARIPIPRAZOLE. [Suspect]
     Active Substance: ARIPIPRAZOLE
     Indication: MENTAL DISORDER
     Dosage: 2 MILLIGRAM, DAILY (IN THE MORNING)
     Route: 065

REACTIONS (7)
  - Suicide threat [Recovered/Resolved]
  - Condition aggravated [Recovered/Resolved]
  - Homicidal ideation [Recovered/Resolved]
  - Weight increased [Recovered/Resolved]
  - Neutropenia [Recovered/Resolved]
  - Anger [Recovered/Resolved]
  - Off label use [Unknown]
